FAERS Safety Report 20750682 (Version 1)
Quarter: 2022Q2

REPORT INFORMATION
  Report Type: Spontaneous
  Country: US (occurrence: US)
  Receive Date: 20220426
  Receipt Date: 20220426
  Transmission Date: 20220721
  Serious: No
  Sender: FDA-Public Use
  Company Number: US-PFIZER INC-202200559887

PATIENT
  Age: 59 Year
  Sex: Female

DRUGS (4)
  1. TACROLIMUS [Suspect]
     Active Substance: TACROLIMUS
     Dosage: UNK
  2. CLOBETASOL [Suspect]
     Active Substance: CLOBETASOL
  3. BETAMETHASONE [Suspect]
     Active Substance: BETAMETHASONE
  4. MOMETASONE [Suspect]
     Active Substance: MOMETASONE

REACTIONS (1)
  - Therapeutic product effect incomplete [Unknown]
